FAERS Safety Report 17419902 (Version 1)
Quarter: 2020Q1

REPORT INFORMATION
  Report Type: Spontaneous
  Country: US (occurrence: US)
  Receive Date: 20200214
  Receipt Date: 20200214
  Transmission Date: 20200409
  Serious: No
  Sender: FDA-Public Use
  Company Number: US-009507513-2001USA007824

PATIENT
  Age: 15 Month
  Sex: Male
  Weight: 11 kg

DRUGS (4)
  1. PROVENTIL [Suspect]
     Active Substance: ALBUTEROL
     Indication: RESPIRATORY DISTRESS
     Dosage: UNK, NEBULIZED
  2. PROVENTIL [Suspect]
     Active Substance: ALBUTEROL
     Dosage: 2.5 MILLIGRAM
  3. PROVENTIL [Suspect]
     Active Substance: ALBUTEROL
     Dosage: INTERMITTENT NEBULIZED ALBUTEROL, RECEIVING FIVE DOSES OVER 48 H
  4. BUDESONIDE. [Concomitant]
     Active Substance: BUDESONIDE
     Indication: RESPIRATORY DISTRESS
     Dosage: UNK, NEBULIZED

REACTIONS (1)
  - Product use issue [Unknown]
